FAERS Safety Report 8981317 (Version 1)
Quarter: 2012Q4

REPORT INFORMATION
  Report Type: 
  Country: DE (occurrence: DE)
  Receive Date: 20121221
  Receipt Date: 20121221
  Transmission Date: 20130627
  Serious: Yes (Other)
  Sender: FDA-Public Use
  Company Number: DE-EISAI INC-E2080-00582-SPO-DE

PATIENT
  Age: 10 Year
  Sex: Female

DRUGS (3)
  1. INOVELON [Suspect]
     Indication: EPILEPSY
     Route: 048
     Dates: start: 201207, end: 2012
  2. TOPIRAMAT [Concomitant]
     Indication: EPILEPSY
     Route: 048
  3. ZONEGRAN [Concomitant]
     Indication: EPILEPSY
     Route: 048

REACTIONS (1)
  - Muscle spasticity [Unknown]
